FAERS Safety Report 9668145 (Version 1)
Quarter: 2013Q4

REPORT INFORMATION
  Report Type: Spontaneous
  Country: US (occurrence: None)
  Receive Date: 20131101
  Receipt Date: 20131101
  Transmission Date: 20140711
  Serious: Yes (Life-Threatening, Hospitalization)
  Sender: FDA-Public Use
  Company Number: 2013AP009305

PATIENT
  Age: 31 Year
  Sex: Female

DRUGS (5)
  1. OLANZAPINE [Suspect]
     Route: 048
  2. ONDANSETRON [Suspect]
     Indication: NAUSEA
  3. HALOPERIDOL [Suspect]
     Indication: AGITATION
     Route: 042
  4. METHADONE [Suspect]
     Route: 042
  5. HYDROMORPHONE [Concomitant]

REACTIONS (2)
  - Torsade de pointes [None]
  - Ventricular tachycardia [None]
